FAERS Safety Report 24784816 (Version 2)
Quarter: 2024Q4

REPORT INFORMATION
  Report Type: Spontaneous
  Country: ES (occurrence: ES)
  Receive Date: 20241228
  Receipt Date: 20241231
  Transmission Date: 20250115
  Serious: Yes (Death, Other)
  Sender: AUROBINDO
  Company Number: ES-SZ09-PHHY2013ES023467

PATIENT

DRUGS (5)
  1. SILDENAFIL [Suspect]
     Active Substance: SILDENAFIL
     Indication: Pulmonary hypertension
     Dosage: UNK
     Route: 048
  2. EPOPROSTENOL [Suspect]
     Active Substance: EPOPROSTENOL
     Indication: Pulmonary hypertension
     Dosage: UNK
     Route: 042
  3. NITRIC OXIDE [Suspect]
     Active Substance: NITRIC OXIDE
     Indication: Pulmonary hypertension
     Dosage: UNK
  4. EPOPROSTENOL [Suspect]
     Active Substance: EPOPROSTENOL
     Indication: Product used for unknown indication
     Dosage: UNK
  5. ILOPROST [Suspect]
     Active Substance: ILOPROST
     Indication: Product used for unknown indication

REACTIONS (3)
  - Pulmonary oedema [Fatal]
  - Pulmonary alveolar haemorrhage [Unknown]
  - Haemorrhage [Unknown]
